FAERS Safety Report 18383172 (Version 1)
Quarter: 2020Q4

REPORT INFORMATION
  Report Type: Spontaneous
  Country: DE (occurrence: DE)
  Receive Date: 20201014
  Receipt Date: 20201014
  Transmission Date: 20210114
  Serious: Yes (Other)
  Sender: FDA-Public Use
  Company Number: DE-PURDUE-USA-2020-0170334

PATIENT
  Age: 86 Year

DRUGS (5)
  1. TARGIN [Concomitant]
     Active Substance: NALOXONE HYDROCHLORIDE\OXYCODONE HYDROCHLORIDE
     Indication: OSTEOARTHRITIS
     Dosage: UNK
     Dates: start: 2005
  2. OXYCODONE HYDROCHLORIDE. [Suspect]
     Active Substance: OXYCODONE HYDROCHLORIDE
     Indication: PRODUCT USED FOR UNKNOWN INDICATION
     Dosage: UNK
     Route: 065
     Dates: start: 20200701
  3. TAVOR (LORAZEPAM) [Suspect]
     Active Substance: LORAZEPAM
     Indication: FEELING OF RELAXATION
     Dosage: PRN (AS NEEDED)
     Route: 065
  4. TAVOR EXPIDET [Suspect]
     Active Substance: LORAZEPAM
     Indication: PAIN
     Dosage: PM (TAKEN IN THE EVENING)
     Route: 065
  5. TAVOR EXPIDET [Suspect]
     Active Substance: LORAZEPAM
     Indication: FEELING OF RELAXATION

REACTIONS (10)
  - Rhinorrhoea [Unknown]
  - Back pain [Unknown]
  - Pain [Unknown]
  - Asthenia [Unknown]
  - Suicidal ideation [Unknown]
  - Drug ineffective [Unknown]
  - Feeling abnormal [Unknown]
  - Scab [Unknown]
  - Dyspnoea [Unknown]
  - Thrombosis [Unknown]

NARRATIVE: CASE EVENT DATE: 202008
